FAERS Safety Report 24136128 (Version 1)
Quarter: 2024Q3

REPORT INFORMATION
  Report Type: Spontaneous
  Country: FR (occurrence: FR)
  Receive Date: 20240725
  Receipt Date: 20240725
  Transmission Date: 20241016
  Serious: Yes (Hospitalization)
  Sender: PFIZER
  Company Number: None

PATIENT
  Age: 94 Year
  Sex: Male
  Weight: 67.5 kg

DRUGS (3)
  1. ALDACTONE [Interacting]
     Active Substance: SPIRONOLACTONE
     Indication: Heart failure with preserved ejection fraction
     Dosage: 0.5 DF, 1X/DAY, LONG TERM
     Route: 048
     Dates: end: 20240614
  2. IRBESARTAN [Interacting]
     Active Substance: IRBESARTAN
     Indication: Heart failure with preserved ejection fraction
     Dosage: 300 MG, 1X/DAY, LONG TERM
     Route: 048
     Dates: end: 20240614
  3. ATENOLOL [Suspect]
     Active Substance: ATENOLOL
     Indication: Heart failure with preserved ejection fraction
     Dosage: 100 MG, 1X/DAY, LONG TERM
     Route: 048
     Dates: end: 20240614

REACTIONS (3)
  - Hyperkalaemia [Recovering/Resolving]
  - Bradycardia [Recovered/Resolved]
  - Drug interaction [Recovering/Resolving]

NARRATIVE: CASE EVENT DATE: 20240614
